FAERS Safety Report 25404227 (Version 1)
Quarter: 2025Q2

REPORT INFORMATION
  Report Type: Spontaneous
  Country: BR (occurrence: BR)
  Receive Date: 20250606
  Receipt Date: 20250606
  Transmission Date: 20250716
  Serious: Yes (Other)
  Sender: SANDOZ
  Company Number: BR-002147023-NVSC2025BR088362

PATIENT
  Age: 50 Year
  Sex: Female
  Weight: 69 kg

DRUGS (3)
  1. ROSUVASTATIN [Suspect]
     Active Substance: ROSUVASTATIN
     Indication: Blood cholesterol abnormal
     Dosage: 1 DF, QD, QD (AT NIGHT) (10 YEARS AGO)
     Route: 048
  2. ENALAPRIL [Concomitant]
     Active Substance: ENALAPRIL
     Indication: Hypertension
     Dosage: 2 DF, QD, 1 DOSAGE FORM, BID (1 TABLET IN THE  MORNING AND 1 AT NIGHT (ABOUT 20 YEARS AGO)
     Route: 048
  3. HYDROCHLOROTHIAZIDE [Concomitant]
     Active Substance: HYDROCHLOROTHIAZIDE
     Indication: Diuretic therapy
     Dosage: 1 DOSAGE FORM QD (IN THE MORNING)  (ABOUT 20 YEARS AGO)
     Route: 048

REACTIONS (8)
  - Arrhythmia [Recovering/Resolving]
  - Diarrhoea [Unknown]
  - Tachycardia [Recovering/Resolving]
  - Dysarthria [Unknown]
  - Hypoglycaemia [Unknown]
  - Dyspnoea [Unknown]
  - Blood glucose increased [Unknown]
  - Insomnia [Unknown]

NARRATIVE: CASE EVENT DATE: 20250201
